FAERS Safety Report 8828546 (Version 1)
Quarter: 2012Q4

REPORT INFORMATION
  Report Type: 
  Country: CA (occurrence: CA)
  Receive Date: 20121005
  Receipt Date: 20121005
  Transmission Date: 20130627
  Serious: Yes (Death, Hospitalization)
  Sender: FDA-Public Use
  Company Number: CA-B.I. PHARMACEUTICALS,INC./RIDGEFIELD-2012-CN-02030CN

PATIENT
  Age: 78 Year
  Sex: Male

DRUGS (3)
  1. PRADAX [Suspect]
     Indication: ATRIAL FIBRILLATION
     Dosage: 220 mg
  2. METFORMIN [Concomitant]
     Indication: DIABETES MELLITUS
  3. ACE INHIBITOR [Concomitant]
     Indication: HYPERTENSION

REACTIONS (1)
  - Intestinal ischaemia [Fatal]
